FAERS Safety Report 5907973-6 (Version None)
Quarter: 2008Q4

REPORT INFORMATION
  Report Type: 
  Country: None (occurrence: None)
  Receive Date: 20081003
  Receipt Date: 20081001
  Transmission Date: 20090506
  Serious: Yes (Death, Hospitalization)
  Sender: FDA-Public Use
  Company Number: CA-WYE-H05759608

PATIENT
  Age: 59 Year
  Sex: Male
  Weight: 120.9 kg

DRUGS (3)
  1. GEMTUZUMAB OZOGAMICIN [Suspect]
     Indication: ACUTE MYELOID LEUKAEMIA
     Dosage: TOTAL DOSE ADMINISTERED THIS COURSE WAS 14.6 MG
     Route: 042
     Dates: start: 20080802, end: 20080805
  2. DAUNORUBICIN HCL [Suspect]
     Indication: ACUTE MYELOID LEUKAEMIA
     Dosage: TOTAL DOSE ADMINISTERED THIS COURSE 328.05 MG
     Route: 065
     Dates: start: 20080802
  3. CYTARABINE [Suspect]
     Indication: ACUTE MYELOID LEUKAEMIA
     Dosage: TOTAL DOSE ADMINISTERED THIS COURSE 1701 MG
     Route: 065
     Dates: start: 20080802

REACTIONS (3)
  - BRONCHOPULMONARY ASPERGILLOSIS [None]
  - DEATH [None]
  - RESPIRATORY FAILURE [None]
